FAERS Safety Report 24784566 (Version 1)
Quarter: 2024Q4

REPORT INFORMATION
  Report Type: Spontaneous
  Country: ZA (occurrence: ZA)
  Receive Date: 20241227
  Receipt Date: 20241227
  Transmission Date: 20250114
  Serious: Yes (Hospitalization)
  Sender: BRACCO
  Company Number: ZA-BRACCO-2024ZA06534

PATIENT
  Age: 37 Year
  Sex: Female

DRUGS (4)
  1. IOMEPROL [Suspect]
     Active Substance: IOMEPROL
     Indication: Angiogram pulmonary
     Dosage: 80 ML, SINGLE
     Route: 042
     Dates: start: 20241003, end: 20241003
  2. EPINEPHRINE [Concomitant]
     Active Substance: EPINEPHRINE
     Dosage: 0.5 ML
     Route: 030
  3. Duolin [Concomitant]
     Dosage: UNK
  4. SOLU-CORTEF [Concomitant]
     Active Substance: HYDROCORTISONE SODIUM SUCCINATE
     Dosage: 200 ML
     Route: 042

REACTIONS (2)
  - Exposure during pregnancy [Unknown]
  - Hypersensitivity [Recovering/Resolving]

NARRATIVE: CASE EVENT DATE: 20241003
